FAERS Safety Report 12350658 (Version 1)
Quarter: 2016Q2

REPORT INFORMATION
  Report Type: Spontaneous
  Country: US (occurrence: None)
  Receive Date: 20160509
  Receipt Date: 20160509
  Transmission Date: 20160815
  Serious: No
  Sender: FDA-Public Use
  Company Number: None

PATIENT
  Age: 39 Year
  Sex: Female
  Weight: 68.04 kg

DRUGS (8)
  1. MULTI-VITAMIN [Concomitant]
     Active Substance: .ALPHA.-TOCOPHEROL ACETATE, DL-\ASCORBIC ACID\CYANOCOBALAMIN\FLUORIDE ION\FOLIC ACID\NIACIN\PYRIDOXINE\RIBOFLAVIN\THIAMINE\VITAMIN A\VITAMIN D
  2. NORTRIPTYLINE 25MG CAPSULE, 25 MG [Suspect]
     Active Substance: NORTRIPTYLINE
     Indication: PAIN IN EXTREMITY
     Dosage: 30 CAPSULE(S) AT BEDTIME TAKEN BY MOUTH
     Route: 048
     Dates: start: 20160301, end: 20160507
  3. NORTRIPTYLINE 25MG CAPSULE, 25 MG [Suspect]
     Active Substance: NORTRIPTYLINE
     Indication: NEURALGIA
     Dosage: 30 CAPSULE(S) AT BEDTIME TAKEN BY MOUTH
     Route: 048
     Dates: start: 20160301, end: 20160507
  4. ZOLOFT [Concomitant]
     Active Substance: SERTRALINE HYDROCHLORIDE
  5. PROBIOTIC [Concomitant]
     Active Substance: PROBIOTICS NOS
  6. KLONOPIN [Concomitant]
     Active Substance: CLONAZEPAM
  7. BIOTIN [Concomitant]
     Active Substance: BIOTIN
  8. MOBIC [Concomitant]
     Active Substance: MELOXICAM

REACTIONS (4)
  - Oesophageal spasm [None]
  - Cough [None]
  - Dyspepsia [None]
  - Chest pain [None]

NARRATIVE: CASE EVENT DATE: 20160307
